FAERS Safety Report 6177804-0 (Version None)
Quarter: 2009Q2

REPORT INFORMATION
  Report Type: 
  Country: None (occurrence: None)
  Receive Date: 20090430
  Receipt Date: 20090415
  Transmission Date: 20091009
  Serious: Yes (Hospitalization)
  Sender: FDA-Public Use
  Company Number: DSM-2009-00482

PATIENT
  Age: 81 Year
  Sex: Female

DRUGS (4)
  1. COOLMETEC 20/12.5(HYDROCHLOROTHIAZIDE, OLMESARTAN MEDOXOMIL)(TABLET)(H [Suspect]
     Indication: HYPERTENSION
     Dosage: 20/12.5 MG, ORAL
     Route: 048
     Dates: start: 20061230, end: 20081001
  2. COOLMETEC 20/12.5(HYDROCHLOROTHIAZIDE, OLMESARTAN MEDOXOMIL)(TABLET)(H [Suspect]
     Indication: HYPERTENSION
     Dosage: 20/12.5 MG, ORAL
     Route: 048
     Dates: start: 20081001, end: 20081201
  3. TRAMADOL HCL [Concomitant]
  4. CODOLIPRANE (CODEINE PHOSPHATE, PARACETAMOL)(CODEINE PHOSPHATE, PARACE [Concomitant]

REACTIONS (10)
  - ANOREXIA [None]
  - COLITIS [None]
  - COLONIC POLYP [None]
  - DEHYDRATION [None]
  - DIARRHOEA [None]
  - ESCHERICHIA INFECTION [None]
  - RECTAL ULCER [None]
  - RENAL FAILURE ACUTE [None]
  - URINARY TRACT INFECTION [None]
  - VOMITING [None]
